FAERS Safety Report 25179771 (Version 1)
Quarter: 2025Q2

REPORT INFORMATION
  Report Type: Report from Study
  Country: CA (occurrence: CA)
  Receive Date: 20250409
  Receipt Date: 20250409
  Transmission Date: 20250717
  Serious: Yes (Hospitalization)
  Sender: GLAXOSMITHKLINE
  Company Number: CA-GLAXOSMITHKLINE INC-CA2025039100

PATIENT

DRUGS (1)
  1. MEPOLIZUMAB [Suspect]
     Active Substance: MEPOLIZUMAB
     Indication: Asthma
     Dosage: 100 MG, QD
     Route: 058
     Dates: start: 20201106

REACTIONS (3)
  - Asthma [Not Recovered/Not Resolved]
  - Asthenia [Not Recovered/Not Resolved]
  - COVID-19 [Unknown]
